FAERS Safety Report 18573601 (Version 2)
Quarter: 2021Q1

REPORT INFORMATION
  Report Type: Spontaneous
  Country: US (occurrence: US)
  Receive Date: 20201203
  Receipt Date: 20210211
  Transmission Date: 20210419
  Serious: No
  Sender: FDA-Public Use
  Company Number: US-JNJFOC-20201140690

PATIENT
  Age: 17 Year
  Sex: Female

DRUGS (14)
  1. DIPHENHYDRAMINE HCL [Concomitant]
     Active Substance: DIPHENHYDRAMINE HYDROCHLORIDE
     Indication: SCHIZOAFFECTIVE DISORDER
     Dosage: AT BED TIME
     Route: 065
  2. CLOZAPINE. [Concomitant]
     Active Substance: CLOZAPINE
     Indication: SCHIZOAFFECTIVE DISORDER
     Dosage: BEFORE BED
     Route: 065
  3. SERTRALINE [Concomitant]
     Active Substance: SERTRALINE HYDROCHLORIDE
     Indication: DEPRESSION
     Route: 065
  4. RISPERIDONE. [Suspect]
     Active Substance: RISPERIDONE
     Indication: SCHIZOAFFECTIVE DISORDER
     Route: 065
  5. METFORMIN [Concomitant]
     Active Substance: METFORMIN HYDROCHLORIDE
     Indication: SCHIZOAFFECTIVE DISORDER
     Route: 065
  6. DIPHENHYDRAMINE HCL [Concomitant]
     Active Substance: DIPHENHYDRAMINE HYDROCHLORIDE
     Route: 065
  7. CLONIDINE. [Concomitant]
     Active Substance: CLONIDINE
     Indication: AGGRESSION
     Route: 065
  8. BENZATROPINE [Concomitant]
     Active Substance: BENZTROPINE
     Indication: SCHIZOAFFECTIVE DISORDER
     Route: 065
  9. RISPERIDONE. [Suspect]
     Active Substance: RISPERIDONE
     Route: 065
  10. RISPERIDONE. [Suspect]
     Active Substance: RISPERIDONE
     Route: 065
  11. LORAZEPAM. [Concomitant]
     Active Substance: LORAZEPAM
     Indication: ANXIETY
     Route: 065
  12. LITHIUM. [Concomitant]
     Active Substance: LITHIUM
     Indication: SCHIZOAFFECTIVE DISORDER
     Route: 065
  13. DIVALPROEX [Concomitant]
     Active Substance: DIVALPROEX SODIUM
     Indication: SCHIZOAFFECTIVE DISORDER
     Dosage: BEFORE BED
     Route: 065
  14. HALOPERIDOL. [Concomitant]
     Active Substance: HALOPERIDOL
     Indication: SCHIZOAFFECTIVE DISORDER
     Route: 030

REACTIONS (7)
  - Off label use [Unknown]
  - Retching [Unknown]
  - Extrapyramidal disorder [Unknown]
  - Akathisia [Unknown]
  - Musculoskeletal stiffness [Unknown]
  - Restlessness [Unknown]
  - Product use issue [Unknown]
